FAERS Safety Report 5464028-5 (Version None)
Quarter: 2007Q3

REPORT INFORMATION
  Report Type: 
  Country: None (occurrence: None)
  Receive Date: 20070919
  Receipt Date: 20070911
  Transmission Date: 20080115
  Serious: Yes (Other)
  Sender: FDA-Public Use
  Company Number: 2007326799

PATIENT
  Age: 40 Year
  Sex: Male

DRUGS (1)
  1. BENGAY (MENTHOL) [Suspect]
     Indication: MUSCLE STRAIN
     Dosage: A HANDFUL UNSPECIFIED,TOPICAL
     Route: 061
     Dates: start: 20070520, end: 20070520

REACTIONS (6)
  - BLISTER [None]
  - BURNING SENSATION [None]
  - ERYTHEMA [None]
  - PURULENCE [None]
  - SCAR [None]
  - THERMAL BURN [None]
